FAERS Safety Report 6698623-2 (Version None)
Quarter: 2010Q2

REPORT INFORMATION
  Report Type: 
  Country: None (occurrence: None)
  Receive Date: 20100427
  Receipt Date: 20100420
  Transmission Date: 20101027
  Serious: No
  Sender: FDA-Public Use
  Company Number: JP-PFIZER INC-2010050066

PATIENT
  Age: 5 Month
  Sex: Female

DRUGS (1)
  1. ATARAX [Suspect]
     Indication: ASTHMA
     Dosage: 0.12 G, 3X/DAY
     Route: 048
     Dates: start: 20100412

REACTIONS (1)
  - MEDICATION RESIDUE [None]
